FAERS Safety Report 5940860-6 (Version None)
Quarter: 2008Q4

REPORT INFORMATION
  Report Type: 
  Country: None (occurrence: None)
  Receive Date: 20081104
  Receipt Date: 20081022
  Transmission Date: 20090506
  Serious: Yes (Hospitalization, Other)
  Sender: FDA-Public Use
  Company Number: US-ELI_LILLY_AND_COMPANY-US200809003150

PATIENT
  Sex: Female

DRUGS (2)
  1. FORTEO [Suspect]
     Dosage: UNK, UNK
     Dates: start: 20080409, end: 20080415
  2. FORTEO [Suspect]
     Dosage: UNK, UNK
     Dates: start: 20080401

REACTIONS (7)
  - BLISTER [None]
  - BONE DISORDER [None]
  - CYSTOPEXY [None]
  - HERPES ZOSTER [None]
  - NEURALGIA [None]
  - NEUROPATHY PERIPHERAL [None]
  - TRANSIENT ISCHAEMIC ATTACK [None]
